FAERS Safety Report 19811659 (Version 2)
Quarter: 2022Q3

REPORT INFORMATION
  Report Type: Spontaneous
  Country: PT (occurrence: PT)
  Receive Date: 20210910
  Receipt Date: 20220928
  Transmission Date: 20221027
  Serious: Yes (Other)
  Sender: FDA-Public Use
  Company Number: PT-SUN PHARMACEUTICAL INDUSTRIES LTD-2021R1-310428

PATIENT
  Sex: Female

DRUGS (1)
  1. VALACYCLOVIR [Suspect]
     Active Substance: VALACYCLOVIR HYDROCHLORIDE
     Indication: Cytomegalovirus infection
     Dosage: 8 GRAM, DAILY
     Route: 065

REACTIONS (4)
  - Exposure during pregnancy [Unknown]
  - Foetal growth restriction [Unknown]
  - Drug ineffective [Unknown]
  - Premature delivery [Unknown]
